FAERS Safety Report 4359275-X (Version None)
Quarter: 2004Q2

REPORT INFORMATION
  Report Type: 
  Country: None (occurrence: None)
  Receive Date: 20040518
  Receipt Date: 20040304
  Transmission Date: 20050107
  Serious: Yes (Hospitalization)
  Sender: FDA-Public Use
  Company Number: PHNU2004DE01106

PATIENT
  Age: 59 Year
  Sex: Male
  Weight: 110 kg

DRUGS (5)
  1. ZOMETA [Suspect]
     Indication: PROSTATE CANCER METASTATIC
     Dosage: 4 MG, ONCE/SINGLE
     Dates: start: 20040302, end: 20040302
  2. LUPRON [Concomitant]
     Route: 048
  3. MULTOSIN [Suspect]
     Route: 048
  4. DIPYRONE TAB [Suspect]
     Indication: PROPHYLAXIS
     Route: 065
     Dates: start: 20040302
  5. CO-TRIMOXAZOLE [Suspect]
     Route: 048

REACTIONS (16)
  - ACUTE CORONARY SYNDROME [None]
  - ARTERIOGRAM CORONARY ABNORMAL [None]
  - BLOOD CREATINE PHOSPHOKINASE INCREASED [None]
  - BLOOD LACTATE DEHYDROGENASE INCREASED [None]
  - CARDIAC FAILURE [None]
  - CHEST DISCOMFORT [None]
  - CORONARY ARTERY DISEASE [None]
  - HYPERHIDROSIS [None]
  - HYPERTENSION [None]
  - HYPERTENSIVE CRISIS [None]
  - LEUKOCYTOSIS [None]
  - MYOCARDIAL INFARCTION [None]
  - NAUSEA [None]
  - TACHYCARDIA [None]
  - TROPONIN I INCREASED [None]
  - WHITE BLOOD CELL COUNT INCREASED [None]
